FAERS Safety Report 9802520 (Version 2)
Quarter: 2014Q2

REPORT INFORMATION
  Report Type: Spontaneous
  Country: US (occurrence: US)
  Receive Date: 20140107
  Receipt Date: 20140425
  Transmission Date: 20141212
  Serious: Yes (Hospitalization, Other)
  Sender: FDA-Public Use
  Company Number: US-AMGEN-USASP2013091759

PATIENT
  Age: 94 Year
  Sex: Female
  Weight: 79.37 kg

DRUGS (10)
  1. PROCRIT [Suspect]
     Indication: ANAEMIA
     Dosage: 40000 UNIT/ML, QWK
     Route: 058
  2. FERROUS SULFATE [Concomitant]
     Indication: ANAEMIA
     Dosage: 325 MG, BID
     Route: 048
     Dates: start: 201311
  3. COREG [Concomitant]
     Indication: CARDIAC FAILURE CONGESTIVE
     Dosage: 3.125 MG, BID
     Route: 048
  4. FLOMAX                             /01280302/ [Concomitant]
     Dosage: 0.4 MG, QD
     Route: 048
     Dates: end: 201311
  5. HYDROXYZINE [Concomitant]
     Dosage: 25 MG, QD
     Route: 048
     Dates: end: 201311
  6. MAGNESIUM OXIDE [Concomitant]
     Indication: BLOOD MAGNESIUM DECREASED
     Dosage: 400 MG, QD
     Route: 048
  7. MEVACOR [Concomitant]
     Indication: BLOOD CHOLESTEROL INCREASED
     Dosage: 20 MG, QD
     Route: 048
  8. PRILOSEC                           /00661201/ [Concomitant]
     Dosage: 20 MG, QD
     Route: 048
     Dates: end: 201311
  9. TOPAMAX [Concomitant]
     Indication: TREMOR
     Dosage: 200 MG, QD
     Route: 048
  10. DIOVAN [Concomitant]
     Indication: CARDIAC FAILURE CONGESTIVE
     Dosage: 40 MG, BID
     Route: 048
     Dates: end: 201311

REACTIONS (12)
  - Ankle fracture [Unknown]
  - Ligament sprain [Unknown]
  - Blood count abnormal [Recovered/Resolved]
  - Bedridden [Not Recovered/Not Resolved]
  - Asthenia [Recovered/Resolved]
  - Somnolence [Recovered/Resolved]
  - Skin discolouration [Recovered/Resolved]
  - Hypotension [Recovered/Resolved]
  - Feeling cold [Recovered/Resolved]
  - Ankle deformity [Unknown]
  - Arthralgia [Unknown]
  - Weight decreased [Not Recovered/Not Resolved]
